FAERS Safety Report 13773070 (Version 1)
Quarter: 2017Q3

REPORT INFORMATION
  Report Type: Spontaneous
  Country: GB (occurrence: GB)
  Receive Date: 20170720
  Receipt Date: 20170720
  Transmission Date: 20171127
  Serious: Yes (Hospitalization)
  Sender: FDA-Public Use
  Company Number: GB-PFIZER INC-2017307067

PATIENT
  Age: 64 Year
  Sex: Female
  Weight: 70 kg

DRUGS (23)
  1. CALCICHEW D3 [Concomitant]
     Active Substance: CALCIUM\CHOLECALCIFEROL
  2. ISOSORBIDE MONONITRATE. [Concomitant]
     Active Substance: ISOSORBIDE MONONITRATE
  3. MEROPENEM. [Suspect]
     Active Substance: MEROPENEM
     Indication: SEPSIS
     Dosage: 1 G, UNK
     Route: 042
     Dates: start: 20170622, end: 20170628
  4. FORTISIP [Concomitant]
     Active Substance: CARBOHYDRATES\FATTY ACIDS\MINERALS\PROTEIN\VITAMINS
  5. NICORANDIL [Concomitant]
     Active Substance: NICORANDIL
  6. OMEPRAZOLE. [Concomitant]
     Active Substance: OMEPRAZOLE
  7. LINACLOTIDE [Concomitant]
     Active Substance: LINACLOTIDE
  8. SODIUM VALPROATE [Suspect]
     Active Substance: VALPROATE SODIUM
     Dosage: UNK
  9. FUROSEMIDE. [Concomitant]
     Active Substance: FUROSEMIDE
  10. RAMIPRIL. [Concomitant]
     Active Substance: RAMIPRIL
  11. AMITRIPTYLINE [Concomitant]
     Active Substance: AMITRIPTYLINE
  12. AMLODIPINE [Concomitant]
     Active Substance: AMLODIPINE BESYLATE
  13. DULOXETINE. [Concomitant]
     Active Substance: DULOXETINE
  14. BISOPROLOL FUMARATE. [Concomitant]
     Active Substance: BISOPROLOL FUMARATE
  15. MORPHINE [Concomitant]
     Active Substance: MORPHINE
  16. PREGABALIN. [Concomitant]
     Active Substance: PREGABALIN
  17. RANOLAZINE. [Concomitant]
     Active Substance: RANOLAZINE
  18. PREDNISOLONE. [Concomitant]
     Active Substance: PREDNISOLONE
  19. CHLORPHENAMINE [Concomitant]
     Active Substance: CHLORPHENIRAMINE MALEATE
  20. CODEINE HYDROCHLORIDE [Concomitant]
     Active Substance: CODEINE HYDROCHLORIDE
  21. HYOSCINE BUTYLBROMIDE [Concomitant]
     Active Substance: BUTYLSCOPOLAMINE
  22. ASPIRIN. [Concomitant]
     Active Substance: ASPIRIN
  23. LOPERAMIDE [Concomitant]
     Active Substance: LOPERAMIDE

REACTIONS (2)
  - Convulsive threshold lowered [Recovered/Resolved]
  - Drug dose omission [Unknown]

NARRATIVE: CASE EVENT DATE: 20170622
